FAERS Safety Report 4865884-1 (Version None)
Quarter: 2005Q4

REPORT INFORMATION
  Report Type: 
  Country: None (occurrence: None)
  Receive Date: 20051223
  Receipt Date: 20051011
  Transmission Date: 20060501
  Serious: Yes (Death, Hospitalization)
  Sender: FDA-Public Use
  Company Number: PHBS2005JP15049

PATIENT
  Age: 53 Year
  Sex: Male

DRUGS (12)
  1. SANDIMMUNE [Suspect]
     Indication: STEM CELL TRANSPLANT
     Dosage: 177 MG/D
     Route: 041
     Dates: start: 19541004
  2. SANDIMMUNE [Suspect]
     Dosage: 180 MG/D
     Route: 041
     Dates: start: 20051005, end: 20051009
  3. SANDIMMUNE [Suspect]
     Dosage: 160 MG/D
     Route: 041
     Dates: start: 20051010, end: 20051010
  4. SANDIMMUNE [Suspect]
     Dosage: 80 MG/D
     Route: 041
     Dates: start: 20051011, end: 20051101
  5. CARBENIN [Concomitant]
     Dosage: 2 G/D
     Route: 041
     Dates: start: 20051005, end: 20051010
  6. MODACIN [Concomitant]
     Dosage: 2 G/D
     Route: 041
     Dates: start: 20051011, end: 20051203
  7. GENTACIN [Concomitant]
     Dosage: 120 MG/D
     Route: 041
     Dates: start: 20051005
  8. GENTACIN [Concomitant]
     Dosage: 60 MG/D
     Route: 041
     Dates: end: 20051023
  9. ENDOXAN [Suspect]
     Indication: STEM CELL TRANSPLANT
     Dosage: 3540 MG/D
     Route: 041
     Dates: start: 20051002, end: 20051002
  10. FUNGUARD [Concomitant]
     Dosage: 150-300 MG/D
     Route: 041
     Dates: start: 20051006, end: 20051203
  11. VANCOMYCIN HYDROCHLORIDE [Concomitant]
     Dosage: 1 G/D
     Route: 041
     Dates: start: 20051006
  12. VANCOMYCIN HYDROCHLORIDE [Concomitant]
     Dosage: 0.5 G/D
     Route: 041
     Dates: end: 20051203

REACTIONS (2)
  - BLOOD CREATININE INCREASED [None]
  - RENAL IMPAIRMENT [None]
